FAERS Safety Report 5951883-5 (Version None)
Quarter: 2008Q4

REPORT INFORMATION
  Report Type: 
  Country: None (occurrence: None)
  Receive Date: 20081113
  Receipt Date: 20081020
  Transmission Date: 20090506
  Serious: Yes (Hospitalization, Other)
  Sender: FDA-Public Use
  Company Number: PHHY2008GB21788

PATIENT
  Sex: Female

DRUGS (8)
  1. CLOZARIL [Suspect]
     Indication: SCHIZOPHRENIA
     Dosage: 550 MG DAILY
     Route: 048
  2. CLOZARIL [Suspect]
     Dosage: 150 MG AM, 250 MG PM
     Route: 048
  3. CLOZARIL [Suspect]
     Dosage: 200 MG MANE, 350 MG NOCTE
  4. OMEPRAZOLE [Suspect]
     Indication: PEPTIC ULCER
     Dosage: 20 MG / DAY
     Route: 048
  5. NAPROXEN [Concomitant]
     Dosage: 500 MG, BID
     Route: 048
  6. ENOXAPARIN SODIUM [Concomitant]
     Indication: DEEP VEIN THROMBOSIS
     Dosage: 40 MG PER DAY
     Route: 058
  7. ACETAMINOPHEN [Concomitant]
     Dosage: 1 G, QDS
     Route: 048
  8. TRAMADOL HCL [Concomitant]

REACTIONS (7)
  - DEEP VEIN THROMBOSIS [None]
  - DRUG INTERACTION [None]
  - DRUG LEVEL INCREASED [None]
  - FALL [None]
  - HIP ARTHROPLASTY [None]
  - JOINT INJURY [None]
  - OEDEMA [None]
